FAERS Safety Report 14568674 (Version 2)
Quarter: 2018Q1

REPORT INFORMATION
  Report Type: Spontaneous
  Country: BE (occurrence: BE)
  Receive Date: 20180223
  Receipt Date: 20180308
  Transmission Date: 20180509
  Serious: Yes (Other)
  Sender: FDA-Public Use
  Company Number: BE-FERRINGPH-2018FE00799

PATIENT

DRUGS (2)
  1. FIRMAGON [Suspect]
     Active Substance: DEGARELIX ACETATE
     Indication: TARGETED CANCER THERAPY
     Dosage: UNK
     Route: 058
     Dates: start: 201703
  2. RADIOTHERAPY [Concomitant]
     Active Substance: RADIATION THERAPY
     Indication: TARGETED CANCER THERAPY

REACTIONS (3)
  - Off label use [Recovered/Resolved]
  - Anaphylactic shock [Recovered/Resolved]
  - Product use in unapproved indication [Recovered/Resolved]
